FAERS Safety Report 6279333-2 (Version None)
Quarter: 2009Q3

REPORT INFORMATION
  Report Type: 
  Country: None (occurrence: None)
  Receive Date: 20090723
  Receipt Date: 20081009
  Transmission Date: 20100115
  Serious: No
  Sender: FDA-Public Use
  Company Number: US-AMGEN-KDL312842

PATIENT
  Sex: Female

DRUGS (8)
  1. PROCRIT [Suspect]
     Indication: ANAEMIA
     Dates: start: 20080801
  2. IRON [Concomitant]
     Route: 042
     Dates: end: 20080903
  3. FUROSEMIDE [Concomitant]
  4. FEMARA [Concomitant]
     Dates: start: 20070101
  5. UNSPECIFIED ANTIHYPERTENSIVE AGENT [Concomitant]
  6. UNSPECIFIED MEDICATION [Concomitant]
  7. VERSED [Concomitant]
  8. DEMEROL [Concomitant]

REACTIONS (2)
  - FEELING HOT [None]
  - PRURITUS [None]
